FAERS Safety Report 21133600 (Version 2)
Quarter: 2022Q3

REPORT INFORMATION
  Report Type: Spontaneous
  Country: HR (occurrence: HR)
  Receive Date: 20220726
  Receipt Date: 20220811
  Transmission Date: 20221026
  Serious: Yes (Hospitalization, Other)
  Sender: FDA-Public Use
  Company Number: HR-009507513-2207HRV007355

PATIENT
  Age: 45 Year
  Sex: Male

DRUGS (16)
  1. LETERMOVIR [Suspect]
     Active Substance: LETERMOVIR
     Indication: Antiviral prophylaxis
     Route: 048
  2. LETERMOVIR [Suspect]
     Active Substance: LETERMOVIR
     Indication: Prophylaxis
     Dosage: 240 MG DAILY
     Route: 048
  3. MYCOPHENOLATE MOFETIL [Concomitant]
     Active Substance: MYCOPHENOLATE MOFETIL
  4. TACROLIMUS [Concomitant]
     Active Substance: TACROLIMUS
  5. PREDNISONE [Concomitant]
     Active Substance: PREDNISONE
  6. PANTOPRAZOLE [Concomitant]
     Active Substance: PANTOPRAZOLE
  7. AMLODIPINE [Concomitant]
     Active Substance: AMLODIPINE BESYLATE
  8. FOLIC ACID [Concomitant]
     Active Substance: FOLIC ACID
  9. MINOXIDIL [Concomitant]
     Active Substance: MINOXIDIL
  10. URAPIDIL [Concomitant]
     Active Substance: URAPIDIL
  11. MOXONIDINE [Concomitant]
     Active Substance: MOXONIDINE
  12. TORSEMIDE [Concomitant]
     Active Substance: TORSEMIDE
  13. ISOSORBIDE MONONITRATE [Concomitant]
     Active Substance: ISOSORBIDE MONONITRATE
  14. CALCIUM POLYSTYRENE SULFONATE [Concomitant]
     Active Substance: CALCIUM POLYSTYRENE SULFONATE
  15. SODIUM BICARBONATE [Concomitant]
     Active Substance: SODIUM BICARBONATE
  16. ASPIRIN [Concomitant]
     Active Substance: ASPIRIN

REACTIONS (3)
  - Cytomegalovirus infection [Unknown]
  - Treatment failure [Unknown]
  - Off label use [Unknown]
